FAERS Safety Report 23393855 (Version 1)
Quarter: 2024Q1

REPORT INFORMATION
  Report Type: Spontaneous
  Country: US (occurrence: US)
  Receive Date: 20240111
  Receipt Date: 20240111
  Transmission Date: 20240410
  Serious: No
  Sender: FDA-Public Use
  Company Number: US-PARI RESPIRATORY EQUIPMENT, INC.-2023PAR00016

PATIENT
  Age: 78 Year
  Sex: Male

DRUGS (2)
  1. KITABIS PAK [Suspect]
     Active Substance: TOBRAMYCIN
     Indication: Bronchiectasis
     Dosage: 300 MG/5 ML (1 AMPULE) VIA NEBULIZER, EVERY 12 HOURS FOR 28 DAYS ON THEN 28 DAYS OFF
     Dates: start: 202303
  2. KITABIS PAK [Suspect]
     Active Substance: TOBRAMYCIN
     Indication: Asthma

REACTIONS (3)
  - Throat irritation [Unknown]
  - Cough [Unknown]
  - Off label use [Not Recovered/Not Resolved]

NARRATIVE: CASE EVENT DATE: 20230301
